FAERS Safety Report 7422558-0 (Version None)
Quarter: 2011Q2

REPORT INFORMATION
  Report Type: 
  Country: None (occurrence: None)
  Receive Date: 20110408
  Receipt Date: 20110325
  Transmission Date: 20111010
  Serious: Yes (Disabling, Other)
  Sender: FDA-Public Use
  Company Number: 027315

PATIENT
  Age: 45 Year
  Sex: Female

DRUGS (2)
  1. LACOSAMIDE [Suspect]
     Indication: EPILEPSY
     Dosage: (200 MG BID), (450 MG, 450 MG (250 MG MORNING AND 200 MG AT NIGHT)), (DOUBLE DOSE)
     Dates: start: 20110101
  2. OXCARBAZEPINE [Concomitant]

REACTIONS (3)
  - ATAXIA [None]
  - ABASIA [None]
  - INCORRECT DOSE ADMINISTERED [None]
